FAERS Safety Report 12389415 (Version 2)
Quarter: 2016Q3

REPORT INFORMATION
  Report Type: Spontaneous
  Country: GB (occurrence: GB)
  Receive Date: 20160520
  Receipt Date: 20160817
  Transmission Date: 20161109
  Serious: Yes (Other)
  Sender: FDA-Public Use
  Company Number: GB-GLAXOSMITHKLINE-GB2016069089

PATIENT
  Age: 11 Year
  Sex: Male
  Weight: 54 kg

DRUGS (12)
  1. FLUDROCORTISONE [Concomitant]
     Active Substance: FLUDROCORTISONE
     Dosage: UNK
  2. TEICOPLANIN [Concomitant]
     Active Substance: TEICOPLANIN
     Dosage: UNK
     Route: 042
  3. GENTAMICIN. [Suspect]
     Active Substance: GENTAMICIN
     Indication: LOWER RESPIRATORY TRACT INFECTION
     Dosage: 100 MG, UNK
     Route: 042
     Dates: start: 20160428, end: 20160429
  4. INFANT GAVISCON (ALGINIC ACID + ALUMINIUM HYDROXIDE + MAGNESIUM TRISIL [Concomitant]
     Dosage: UNK
  5. POTASSIUM CITRATE. [Concomitant]
     Active Substance: POTASSIUM CITRATE
     Dosage: UNK
  6. FOLIC ACID. [Concomitant]
     Active Substance: FOLIC ACID
     Dosage: UNK
  7. SODIUM FEREDETATE [Concomitant]
     Active Substance: SODIUM FEREDETATE
     Dosage: UNK
  8. PYRIDOXINE [Concomitant]
     Active Substance: PYRIDOXINE
     Dosage: UNK
  9. ACICLOVIR [Suspect]
     Active Substance: ACYCLOVIR
     Indication: HERPES ZOSTER
     Dosage: 800 MG, UNK, 500MG/SQM
     Route: 042
     Dates: start: 20160428, end: 20160430
  10. NICOTINAMIDE + PYRIDOXINE HYDROCHLORIDE + RIBOFLAVIN [Concomitant]
     Dosage: UNK
  11. HYDROCORTISONE. [Concomitant]
     Active Substance: HYDROCORTISONE
     Dosage: UNK
  12. PARACETAMOL [Concomitant]
     Active Substance: ACETAMINOPHEN
     Dosage: UNK

REACTIONS (2)
  - Acute kidney injury [Recovering/Resolving]
  - Incorrect dose administered [Unknown]

NARRATIVE: CASE EVENT DATE: 20160429
